FAERS Safety Report 6337499-X (Version None)
Quarter: 2009Q3

REPORT INFORMATION
  Report Type: 
  Country: None (occurrence: None)
  Receive Date: 20090901
  Receipt Date: 20090901
  Transmission Date: 20100115
  Serious: Yes (Other)
  Sender: FDA-Public Use
  Company Number: None

PATIENT
  Age: 1 Year
  Sex: Male
  Weight: 69.8539 kg

DRUGS (1)
  1. ACTOS [Suspect]
     Indication: TYPE 2 DIABETES MELLITUS
     Dosage: 15MG
     Dates: start: 20090821, end: 20090831

REACTIONS (4)
  - FEAR [None]
  - PHOTOPSIA [None]
  - RETINAL DETACHMENT [None]
  - VISUAL IMPAIRMENT [None]
